FAERS Safety Report 11069728 (Version 2)
Quarter: 2015Q2

REPORT INFORMATION
  Report Type: Spontaneous
  Country: US (occurrence: US)
  Receive Date: 20150427
  Receipt Date: 20150515
  Transmission Date: 20150821
  Serious: Yes (Hospitalization, Other)
  Sender: FDA-Public Use
  Company Number: US-BAYER-2015-162393

PATIENT
  Age: 34 Year
  Sex: Female
  Weight: 95.24 kg

DRUGS (4)
  1. MIRENA [Suspect]
     Active Substance: LEVONORGESTREL
     Indication: CONTRACEPTION
     Dosage: 20 MCG/24HR, CONT
     Route: 015
     Dates: start: 20130718, end: 20140527
  2. FERROUS SULFATE [Concomitant]
     Active Substance: FERROUS SULFATE\FERROUS SULFATE, DRIED
  3. PRENATAL VITAMINS [Concomitant]
     Active Substance: VITAMINS
  4. MOTRIN [Concomitant]
     Active Substance: IBUPROFEN

REACTIONS (8)
  - Injury [None]
  - Pregnancy of unknown location [None]
  - Uterine perforation [None]
  - Pregnancy with contraceptive device [None]
  - Abortion spontaneous [None]
  - Uterine perforation [None]
  - Device issue [None]
  - Complication of device removal [None]

NARRATIVE: CASE EVENT DATE: 20130720
